FAERS Safety Report 14024610 (Version 1)
Quarter: 2017Q3

REPORT INFORMATION
  Report Type: Spontaneous
  Country: US (occurrence: US)
  Receive Date: 20170928
  Receipt Date: 20170928
  Transmission Date: 20171128
  Serious: No
  Sender: FDA-Public Use
  Company Number: US-SA-2017SA016041

PATIENT
  Age: 46 Year
  Sex: Male

DRUGS (8)
  1. BACLOFEN. [Concomitant]
     Active Substance: BACLOFEN
  2. ADVIL [Concomitant]
     Active Substance: IBUPROFEN
  3. TAMSULOSIN HYDROCHLORIDE. [Concomitant]
     Active Substance: TAMSULOSIN HYDROCHLORIDE
  4. VESICARE [Concomitant]
     Active Substance: SOLIFENACIN SUCCINATE
  5. VITAMIN D3 [Concomitant]
     Active Substance: CHOLECALCIFEROL
  6. ALEVE [Concomitant]
     Active Substance: NAPROXEN SODIUM
     Indication: ARTHRITIS
  7. AUBAGIO [Suspect]
     Active Substance: TERIFLUNOMIDE
     Indication: MULTIPLE SCLEROSIS
     Route: 048
  8. CALCIUM [Concomitant]
     Active Substance: CALCIUM

REACTIONS (7)
  - Musculoskeletal stiffness [Unknown]
  - Physical disability [Unknown]
  - Depression [Not Recovered/Not Resolved]
  - Muscle spasticity [Unknown]
  - Prostatomegaly [Unknown]
  - Inflammation [Unknown]
  - Condition aggravated [Unknown]
